FAERS Safety Report 7894095-0 (Version None)
Quarter: 2011Q4

REPORT INFORMATION
  Report Type: 
  Country: None (occurrence: None)
  Receive Date: 20111104
  Receipt Date: 20111101
  Transmission Date: 20120403
  Serious: No
  Sender: FDA-Public Use
  Company Number: US-PFIZER INC-2011267905

PATIENT
  Age: 64 Year
  Sex: Female

DRUGS (3)
  1. LOVENOX [Suspect]
     Indication: PROPHYLAXIS
     Dosage: 30 MG, 2X/DAY
     Dates: start: 20111001
  2. CELEBREX [Suspect]
     Indication: PAIN
     Dosage: UNK
  3. OXYCODONE HYDROCHLORIDE [Suspect]
     Indication: PAIN
     Dosage: UNK

REACTIONS (1)
  - RASH PRURITIC [None]
